FAERS Safety Report 10673715 (Version 1)
Quarter: 2014Q4

REPORT INFORMATION
  Report Type: Spontaneous
  Country: US (occurrence: US)
  Receive Date: 20141224
  Receipt Date: 20141224
  Transmission Date: 20150529
  Serious: Yes (Life-Threatening, Hospitalization, Other)
  Sender: FDA-Public Use
  Company Number: US-ASTRAZENECA-2014SE97530

PATIENT
  Sex: Female

DRUGS (2)
  1. BRILINTA [Suspect]
     Active Substance: TICAGRELOR
     Indication: ACUTE MYOCARDIAL INFARCTION
     Route: 048
     Dates: start: 20141215
  2. BRILINTA [Suspect]
     Active Substance: TICAGRELOR
     Indication: MYOCARDIAL INFARCTION
     Route: 048
     Dates: start: 20141215

REACTIONS (3)
  - Thrombotic thrombocytopenic purpura [Not Recovered/Not Resolved]
  - Haemorrhage [Not Recovered/Not Resolved]
  - Disseminated intravascular coagulation [Not Recovered/Not Resolved]

NARRATIVE: CASE EVENT DATE: 201412
